FAERS Safety Report 23110390 (Version 1)
Quarter: 2023Q4

REPORT INFORMATION
  Report Type: Spontaneous
  Country: US (occurrence: None)
  Receive Date: 20231024
  Receipt Date: 20231024
  Transmission Date: 20240110
  Serious: Yes (Hospitalization)
  Sender: FDA-Public Use
  Company Number: None

PATIENT
  Age: 53 Year
  Sex: Male

DRUGS (1)
  1. SACUBITRIL\VALSARTAN [Suspect]
     Active Substance: SACUBITRIL\VALSARTAN
     Dosage: FREQUENCY : TWICE A DAY ?DOSE: 97MG/103MG
     Route: 048
     Dates: start: 20230213, end: 20230307

REACTIONS (1)
  - Angioedema [None]

NARRATIVE: CASE EVENT DATE: 20230308
